FAERS Safety Report 11080442 (Version 1)
Quarter: 2015Q2

REPORT INFORMATION
  Report Type: Spontaneous
  Country: US (occurrence: US)
  Receive Date: 20150430
  Receipt Date: 20150430
  Transmission Date: 20150821
  Serious: Yes (Other)
  Sender: FDA-Public Use
  Company Number: US-GILEAD-2015-0150812

PATIENT
  Sex: Male

DRUGS (2)
  1. SOVALDI [Suspect]
     Active Substance: SOFOSBUVIR
     Indication: HEPATITIS C
     Dosage: UNK
     Route: 065
     Dates: end: 201408
  2. RIBAVIRIN. [Suspect]
     Active Substance: RIBAVIRIN
     Indication: HEPATITIS C
     Dosage: UNK
     Route: 065
     Dates: end: 201408

REACTIONS (10)
  - Drug dose omission [Unknown]
  - Hepatic lesion [Unknown]
  - Influenza [Unknown]
  - Drug ineffective [Unknown]
  - Pyrexia [Unknown]
  - Hepatitis C RNA increased [Unknown]
  - Emphysema [Unknown]
  - Hepatic cirrhosis [Unknown]
  - Ascites [Unknown]
  - Therapy cessation [Unknown]
